FAERS Safety Report 8503914-6 (Version None)
Quarter: 2012Q3

REPORT INFORMATION
  Report Type: 
  Country: None (occurrence: None)
  Receive Date: 20120711
  Receipt Date: 20120703
  Transmission Date: 20120928
  Serious: Yes (Death)
  Sender: FDA-Public Use
  Company Number: JP-BRISTOL-MYERS SQUIBB COMPANY-15007131

PATIENT
  Age: 24 Year
  Sex: Male
  Weight: 51 kg

DRUGS (1)
  1. SPRYCEL [Suspect]
     Indication: CHRONIC MYELOID LEUKAEMIA
     Dosage: 27OCT09(100-100MG120MG)MODIFD DASAT THRPY,27OT-11NO09,100MG 1/DY,120MG/EVRY 3DYS,100MG/2 EVRY 3DYS
     Route: 048
     Dates: start: 20091027, end: 20100126

REACTIONS (3)
  - PLATELET COUNT DECREASED [None]
  - PLEURAL EFFUSION [None]
  - NEOPLASM MALIGNANT [None]
